FAERS Safety Report 11050632 (Version 2)
Quarter: 2015Q2

REPORT INFORMATION
  Report Type: Report from Study
  Country: UG (occurrence: None)
  Receive Date: 20150417
  Receipt Date: 20150430
  Transmission Date: 20150821
  Serious: Yes (Death, Life-Threatening)
  Sender: FDA-Public Use
  Company Number: UG2015GSK050860

PATIENT
  Age: 48 Year
  Sex: Male

DRUGS (6)
  1. ZIDOVUDINE (ZIDOVUDINE) UNKNOWN) [Suspect]
     Active Substance: ZIDOVUDINE
     Indication: HIV INFECTION
     Dates: start: 20140527, end: 20140821
  2. AMTRICITABINE (EMTRICITABINE) [Concomitant]
  3. LAMIVUDINE (LAMIVUDINE) UNKNOWN [Suspect]
     Active Substance: LAMIVUDINE
     Indication: HIV INFECTION
     Dates: start: 20140527, end: 20140821
  4. TENOFOVIR (TENOFOVIR) [Concomitant]
  5. EFAVIRENZ (EFAVIRENZ) [Concomitant]
     Active Substance: EFAVIRENZ
  6. COTRIMOXAZOLE [Suspect]
     Active Substance: SULFAMETHOXAZOLE\TRIMETHOPRIM
     Indication: HIV INFECTION
     Dates: start: 20140527

REACTIONS (3)
  - Dehydration [None]
  - Anaemia [None]
  - Pallor [None]

NARRATIVE: CASE EVENT DATE: 20140814
